FAERS Safety Report 15522938 (Version 2)
Quarter: 2018Q4

REPORT INFORMATION
  Report Type: Spontaneous
  Country: US (occurrence: US)
  Receive Date: 20181017
  Receipt Date: 20181107
  Transmission Date: 20190205
  Serious: Yes (Other)
  Sender: FDA-Public Use
  Company Number: US-DSJP-DSU-2017-146754

PATIENT

DRUGS (2)
  1. BENICAR [Suspect]
     Active Substance: OLMESARTAN MEDOXOMIL
     Indication: HYPERTENSION
     Dosage: UNK
     Route: 065
     Dates: start: 2004, end: 20171201
  2. BENICAR [Suspect]
     Active Substance: OLMESARTAN MEDOXOMIL
     Dosage: 40 MG, QD
     Route: 048
     Dates: end: 20171201

REACTIONS (8)
  - Hiatus hernia [Unknown]
  - Duodenal polyp [Recovered/Resolved]
  - Gastritis erosive [Unknown]
  - Diverticulum [Unknown]
  - Oesophagitis ulcerative [Not Recovered/Not Resolved]
  - Haemorrhoids [Unknown]
  - Sprue-like enteropathy [Not Recovered/Not Resolved]
  - Polyp [Recovered/Resolved]

NARRATIVE: CASE EVENT DATE: 20070322
